FAERS Safety Report 8619664-1 (Version None)
Quarter: 2012Q3

REPORT INFORMATION
  Report Type: 
  Country: None (occurrence: None)
  Receive Date: 20120824
  Receipt Date: 20120816
  Transmission Date: 20120928
  Serious: Yes (Other)
  Sender: FDA-Public Use
  Company Number: US-JNJFOC-20120808325

PATIENT
  Age: 60 Year
  Sex: Female

DRUGS (3)
  1. CLINDAMYCIN [Suspect]
     Indication: OSTEOMYELITIS
     Route: 048
  2. CLINDAMYCIN [Suspect]
     Route: 042
  3. STELARA [Suspect]
     Indication: PRODUCT USED FOR UNKNOWN INDICATION
     Route: 058
     Dates: start: 20120201

REACTIONS (2)
  - OSTEOMYELITIS [None]
  - URTICARIA [None]
